FAERS Safety Report 6127607-8 (Version None)
Quarter: 2009Q1

REPORT INFORMATION
  Report Type: 
  Country: None (occurrence: None)
  Receive Date: 20090319
  Receipt Date: 20090319
  Transmission Date: 20090719
  Serious: Yes (Disabling)
  Sender: FDA-Public Use
  Company Number: None

PATIENT
  Age: 66 Year
  Sex: Male
  Weight: 80.2867 kg

DRUGS (1)
  1. CLONIDINE [Suspect]
     Indication: HYPERTENSION

REACTIONS (2)
  - PRURITUS [None]
  - RASH GENERALISED [None]
